FAERS Safety Report 24438282 (Version 1)
Quarter: 2024Q4

REPORT INFORMATION
  Report Type: Spontaneous
  Country: CA (occurrence: CA)
  Receive Date: 20241015
  Receipt Date: 20241015
  Transmission Date: 20250115
  Serious: Yes (Hospitalization, Other)
  Sender: SANOFI AVENTIS
  Company Number: CA-MLMSERVICE-20180307-1094368-1

PATIENT
  Age: 53 Year
  Sex: Male

DRUGS (17)
  1. PREDNISONE [Suspect]
     Active Substance: PREDNISONE
     Indication: Graft versus host disease in skin
     Dosage: 40 MG,QD
     Route: 065
  2. PREDNISONE [Suspect]
     Active Substance: PREDNISONE
     Indication: Graft versus host disease in gastrointestinal tract
     Dosage: 10 MG, QD
     Route: 065
  3. PREDNISONE [Suspect]
     Active Substance: PREDNISONE
     Indication: Graft versus host disease in lung
  4. PREDNISONE [Suspect]
     Active Substance: PREDNISONE
     Indication: Graft versus host disease in liver
  5. ALEMTUZUMAB [Suspect]
     Active Substance: ALEMTUZUMAB
     Indication: Prophylaxis against graft versus host disease
     Dosage: UNK, TOTAL
     Route: 065
  6. TACROLIMUS [Suspect]
     Active Substance: TACROLIMUS
     Indication: Chronic graft versus host disease in intestine
     Dosage: UNK UNK,UNK
     Route: 065
  7. TACROLIMUS [Suspect]
     Active Substance: TACROLIMUS
     Indication: Graft versus host disease in skin
  8. TACROLIMUS [Suspect]
     Active Substance: TACROLIMUS
     Indication: Chronic graft versus host disease in liver
  9. CYCLOSPORINE [Suspect]
     Active Substance: CYCLOSPORINE
     Indication: Prophylaxis against graft versus host disease
     Dosage: UNK UNK,UNK
     Route: 065
  10. MYCOPHENOLATE SODIUM [Suspect]
     Active Substance: MYCOPHENOLATE SODIUM
     Indication: Graft versus host disease in skin
     Dosage: UNK UNK,UNK
     Route: 065
  11. MYCOPHENOLATE SODIUM [Suspect]
     Active Substance: MYCOPHENOLATE SODIUM
     Indication: Chronic graft versus host disease in intestine
  12. MYCOPHENOLATE SODIUM [Suspect]
     Active Substance: MYCOPHENOLATE SODIUM
     Indication: Graft versus host disease in lung
  13. MYCOPHENOLATE SODIUM [Suspect]
     Active Substance: MYCOPHENOLATE SODIUM
     Indication: Chronic graft versus host disease in liver
  14. AZATHIOPRINE [Suspect]
     Active Substance: AZATHIOPRINE
     Indication: Chronic graft versus host disease in intestine
     Dosage: UNK UNK,UNK
     Route: 065
  15. AZATHIOPRINE [Suspect]
     Active Substance: AZATHIOPRINE
     Indication: Chronic graft versus host disease in liver
  16. AZATHIOPRINE [Suspect]
     Active Substance: AZATHIOPRINE
     Indication: Graft versus host disease in skin
  17. IMMUNE GLOBULIN NOS [Concomitant]
     Active Substance: IMMUNE GLOBULIN NOS
     Indication: Hypogammaglobulinaemia
     Dosage: UNK UNK, QM
     Route: 042

REACTIONS (8)
  - JC virus infection [Recovering/Resolving]
  - Progressive multifocal leukoencephalopathy [Recovering/Resolving]
  - Aphasia [Recovering/Resolving]
  - Central nervous system lesion [Recovering/Resolving]
  - Personality change [Recovering/Resolving]
  - Impulsive behaviour [Recovering/Resolving]
  - Flat affect [Recovering/Resolving]
  - Dysgraphia [Recovered/Resolved]
